FAERS Safety Report 6003677-2 (Version None)
Quarter: 2008Q4

REPORT INFORMATION
  Report Type: 
  Country: None (occurrence: None)
  Receive Date: 20081216
  Receipt Date: 20080715
  Transmission Date: 20090506
  Serious: No
  Sender: FDA-Public Use
  Company Number: US-AMGEN-KDL294884

PATIENT
  Sex: Female

DRUGS (1)
  1. ARANESP [Suspect]
     Indication: DIALYSIS

REACTIONS (4)
  - ARTERIOVENOUS FISTULA OPERATION [None]
  - BLOOD IRON DECREASED [None]
  - FATIGUE [None]
  - PAIN [None]
